FAERS Safety Report 5767039-5 (Version None)
Quarter: 2008Q2

REPORT INFORMATION
  Report Type: 
  Country: None (occurrence: None)
  Receive Date: 20080612
  Receipt Date: 20080603
  Transmission Date: 20081010
  Serious: Yes (Hospitalization)
  Sender: FDA-Public Use
  Company Number: JP-WYE-H03790708

PATIENT
  Sex: Male

DRUGS (9)
  1. AMIODARONE HCL [Suspect]
     Indication: VENTRICULAR FIBRILLATION
     Route: 048
     Dates: start: 20080123, end: 20080409
  2. AMIODARONE HCL [Suspect]
     Indication: VENTRICULAR TACHYCARDIA
     Route: 048
     Dates: start: 20080421, end: 20080425
  3. LASIX [Concomitant]
     Indication: CARDIAC FAILURE CONGESTIVE
     Dosage: 20 MG, FREQUENCY NOT SPECIFIED
     Route: 048
  4. TICLOPIDINE HCL [Concomitant]
     Indication: CEREBROVASCULAR ACCIDENT
     Dosage: 200 MG, FREQUENCY NOT SPECIFIED
     Route: 048
  5. LIPITOR [Concomitant]
     Indication: HYPERLIPIDAEMIA
     Dosage: 10 MG, FREQUENCY NOT SPECIFIED
     Route: 048
  6. NICORANDIL [Concomitant]
     Indication: CARDIAC FAILURE CONGESTIVE
     Dosage: 15 (UNITS UNKNOWN), FREQUENCY NOT SPECIFIED
     Route: 048
  7. RETICOLAN [Concomitant]
     Indication: VITAMIN B12 DEFICIENCY
     Dosage: 1500 MCG, FREQUENCY NOT SPECIFIED
     Route: 048
  8. AMLODIPINE [Concomitant]
     Indication: HYPERTENSION
     Dosage: 2.5 MG, FREQUENCY NOT SPECIFIED
     Route: 048
  9. LANSOPRAZOLE [Concomitant]
     Indication: GASTRECTOMY
     Dosage: 15 MG, FREQUENCY NOT SPECIFIED
     Route: 048

REACTIONS (2)
  - ANAEMIA [None]
  - CONDITION AGGRAVATED [None]
